FAERS Safety Report 18026111 (Version 3)
Quarter: 2020Q3

REPORT INFORMATION
  Report Type: Report from Study
  Country: DE (occurrence: DE)
  Receive Date: 20200715
  Receipt Date: 20200813
  Transmission Date: 20201103
  Serious: Yes (Other)
  Sender: FDA-Public Use
  Company Number: NVSC2020DE185883

PATIENT
  Sex: Male
  Weight: 7 kg

DRUGS (4)
  1. TRAMETINIB [Suspect]
     Active Substance: TRAMETINIB
     Dosage: 0.25 MG
     Route: 065
     Dates: start: 20200624
  2. TRAMETINIB [Suspect]
     Active Substance: TRAMETINIB
     Indication: GLIOMA
     Dosage: 0.25 MG, QD
     Route: 065
     Dates: start: 20200420, end: 20200621
  3. IBUPROFEN. [Concomitant]
     Active Substance: IBUPROFEN
     Indication: ANTIPYRESIS
     Dosage: UNK
     Route: 065
  4. PARACETAMOL [Concomitant]
     Active Substance: ACETAMINOPHEN
     Indication: ANTIPYRESIS
     Dosage: UNK
     Route: 065

REACTIONS (3)
  - Neutropenia [Unknown]
  - Pyrexia [Recovered/Resolved]
  - Tinea infection [Unknown]

NARRATIVE: CASE EVENT DATE: 20200622
